FAERS Safety Report 7916595-7 (Version None)
Quarter: 2011Q4

REPORT INFORMATION
  Report Type: 
  Country: None (occurrence: None)
  Receive Date: 20111104
  Receipt Date: 20111027
  Transmission Date: 20120403
  Serious: Yes (Life-Threatening, Hospitalization)
  Sender: FDA-Public Use
  Company Number: 2011030158

PATIENT
  Sex: Female

DRUGS (13)
  1. HIZENTRA [Suspect]
     Indication: IMMUNODEFICIENCY
     Dosage: (20 G 1X/WEEK, 15 ML/HR SUBCUTANEOUS) (SUBCUTANEOUS)
     Route: 058
     Dates: start: 20110930, end: 20110930
  2. HIZENTRA [Suspect]
     Indication: IMMUNODEFICIENCY
     Dosage: (20 G 1X/WEEK, 15 ML/HR SUBCUTANEOUS) (SUBCUTANEOUS)
     Route: 058
     Dates: start: 20111005, end: 20111005
  3. HIZENTRA [Suspect]
     Indication: IMMUNODEFICIENCY
     Dosage: (20 G 1X/WEEK, 15 ML/HR SUBCUTANEOUS) (SUBCUTANEOUS)
     Route: 058
     Dates: start: 20110921, end: 20110921
  4. HIZENTRA [Suspect]
     Indication: IMMUNODEFICIENCY
     Dosage: (20 G 1X/WEEK, 15 ML/HR SUBCUTANEOUS) (SUBCUTANEOUS)
     Route: 058
     Dates: start: 20111012, end: 20111012
  5. ADVAIR DISKUS 100/50 [Concomitant]
  6. HIZENTRA [Suspect]
  7. HIZENTRA [Suspect]
  8. KEPPRA [Concomitant]
  9. HIZENTRA [Suspect]
  10. ZYRTEC [Concomitant]
  11. LEVOTHYROXINE SODIUM [Concomitant]
  12. NOVOLOG [Concomitant]
  13. SIMVASTATIN [Concomitant]

REACTIONS (6)
  - PRODUCT COLOUR ISSUE [None]
  - PRODUCT PHYSICAL ISSUE [None]
  - THROAT TIGHTNESS [None]
  - PHARYNGEAL OEDEMA [None]
  - FEELING ABNORMAL [None]
  - DYSPNOEA [None]
